FAERS Safety Report 9142785 (Version 1)
Quarter: 2013Q1

REPORT INFORMATION
  Report Type: Spontaneous
  Country: US (occurrence: US)
  Receive Date: 20130306
  Receipt Date: 20130306
  Transmission Date: 20140127
  Serious: Yes (Death, Other)
  Sender: FDA-Public Use
  Company Number: US-PURDUE-USA-2013-0099442

PATIENT
  Sex: Female

DRUGS (2)
  1. MORPHINE SULFATE (SIMILAR TO NDA 19-516) [Suspect]
     Indication: DRUG ABUSE
  2. OXYCONTIN TABLETS [Suspect]
     Indication: DRUG ABUSE
     Route: 042

REACTIONS (3)
  - Death [Fatal]
  - Drug dependence [Unknown]
  - Drug abuse [Unknown]
